FAERS Safety Report 6682453-1 (Version None)
Quarter: 2010Q2

REPORT INFORMATION
  Report Type: 
  Country: None (occurrence: None)
  Receive Date: 20100415
  Receipt Date: 20100409
  Transmission Date: 20101027
  Serious: Yes (Death)
  Sender: FDA-Public Use
  Company Number: US-CELGENEUS-163-21880-10040843

PATIENT
  Sex: Female

DRUGS (3)
  1. REVLIMID [Suspect]
     Indication: MULTIPLE MYELOMA
     Route: 048
     Dates: start: 20100310
  2. REVLIMID [Suspect]
     Route: 048
     Dates: start: 20090313
  3. REVLIMID [Suspect]
     Route: 048
     Dates: start: 20090501

REACTIONS (4)
  - DEATH [None]
  - INFECTION [None]
  - NEUTROPENIA [None]
  - OSTEOMYELITIS [None]
